FAERS Safety Report 20074385 (Version 3)
Quarter: 2023Q4

REPORT INFORMATION
  Report Type: Spontaneous
  Country: US (occurrence: US)
  Receive Date: 20211116
  Receipt Date: 20231222
  Transmission Date: 20240110
  Serious: No
  Sender: FDA-Public Use
  Company Number: US-PFIZER INC-202101524564

PATIENT
  Age: 50 Year
  Sex: Female
  Weight: 156 kg

DRUGS (12)
  1. XELJANZ [Suspect]
     Active Substance: TOFACITINIB CITRATE
     Indication: Crohn^s disease
     Dosage: 5 MG, 2X/DAY
     Route: 048
     Dates: start: 202105
  2. XELJANZ [Suspect]
     Active Substance: TOFACITINIB CITRATE
     Indication: Arthritis
  3. AMOXICILLIN\CLAVULANIC ACID [Concomitant]
     Active Substance: AMOXICILLIN\CLAVULANIC ACID
     Dosage: UNK
  4. TOUJEO [Concomitant]
     Active Substance: INSULIN GLARGINE
     Dosage: UNK
     Dates: end: 202308
  5. ROSUVASTATIN [Concomitant]
     Active Substance: ROSUVASTATIN
     Dosage: UNK
  6. LEVOTHYROXINE [Concomitant]
     Active Substance: LEVOTHYROXINE
     Dosage: UNK
  7. PROMETHAZINE DM [Concomitant]
     Active Substance: DEXTROMETHORPHAN HYDROBROMIDE\PROMETHAZINE HYDROCHLORIDE
     Dosage: UNK
  8. AMITRIPTYLINE [Concomitant]
     Active Substance: AMITRIPTYLINE
     Dosage: UNK
  9. BENADRYL [Concomitant]
     Active Substance: DIPHENHYDRAMINE HYDROCHLORIDE
     Dosage: UNK
  10. TYLENOL [Concomitant]
     Active Substance: ACETAMINOPHEN
     Dosage: UNK
  11. VITAMIN D3 [Concomitant]
     Active Substance: CHOLECALCIFEROL
     Dosage: UNK
  12. MOUNJARO [Concomitant]
     Active Substance: TIRZEPATIDE
     Dosage: UNK

REACTIONS (7)
  - Off label use [Unknown]
  - Infection [Recovered/Resolved]
  - Ear infection [Recovered/Resolved]
  - Sinusitis [Recovered/Resolved]
  - Urinary tract infection [Recovered/Resolved]
  - Condition aggravated [Recovered/Resolved]
  - Illness [Recovered/Resolved]
